FAERS Safety Report 12387610 (Version 2)
Quarter: 2017Q1

REPORT INFORMATION
  Report Type: Spontaneous
  Country: MY (occurrence: MY)
  Receive Date: 20160520
  Receipt Date: 20170120
  Transmission Date: 20170428
  Serious: Yes (Other)
  Sender: FDA-Public Use
  Company Number: MY-ABBVIE-16K-101-1630123-00

PATIENT
  Age: 57 Year
  Sex: Female

DRUGS (6)
  1. AZATHIOPRINE. [Concomitant]
     Active Substance: AZATHIOPRINE
     Indication: PRODUCT USED FOR UNKNOWN INDICATION
     Dates: start: 200008, end: 200307
  2. METHOTREXATE. [Concomitant]
     Active Substance: METHOTREXATE
     Dates: start: 200008, end: 201310
  3. CYCLOSPORIN A [Concomitant]
     Active Substance: CYCLOSPORINE
     Indication: PRODUCT USED FOR UNKNOWN INDICATION
     Dates: start: 20000822, end: 200108
  4. HUMIRA [Suspect]
     Active Substance: ADALIMUMAB
     Indication: RHEUMATOID ARTHRITIS
     Dosage: TOTAL NUMBER OF DOSES: 166
     Route: 058
     Dates: start: 201001, end: 20160510
  5. METHOTREXATE. [Concomitant]
     Active Substance: METHOTREXATE
     Indication: RHEUMATOID ARTHRITIS
     Dates: start: 201001
  6. LEFLUNOMIDE. [Concomitant]
     Active Substance: LEFLUNOMIDE
     Indication: PRODUCT USED FOR UNKNOWN INDICATION
     Dates: start: 200708, end: 201006

REACTIONS (1)
  - Breast cancer stage III [Unknown]

NARRATIVE: CASE EVENT DATE: 201601
